FAERS Safety Report 8238086-9 (Version None)
Quarter: 2012Q1

REPORT INFORMATION
  Report Type: 
  Country: None (occurrence: None)
  Receive Date: 20120327
  Receipt Date: 20120321
  Transmission Date: 20120608
  Serious: Yes (Hospitalization)
  Sender: FDA-Public Use
  Company Number: DE-GLAXOSMITHKLINE-B0788311A

PATIENT
  Sex: Female
  Weight: 44.2 kg

DRUGS (4)
  1. PACLITAXEL [Suspect]
     Indication: BREAST CANCER
     Dosage: 80MGM2 WEEKLY
     Route: 042
     Dates: start: 20091015, end: 20091230
  2. LAPATINIB [Suspect]
     Indication: BREAST CANCER
     Dosage: 1500MG PER DAY
     Route: 048
     Dates: start: 20100218, end: 20101014
  3. TRASTUZUMAB [Suspect]
     Indication: BREAST CANCER
     Dosage: 2MGK WEEKLY
     Route: 042
     Dates: start: 20091015, end: 20091230
  4. IBUPROFEN [Concomitant]
     Indication: BACK PAIN
     Route: 048
     Dates: start: 20070101, end: 20120118

REACTIONS (1)
  - RECTAL CANCER [None]
